FAERS Safety Report 23079155 (Version 1)
Quarter: 2023Q4

REPORT INFORMATION
  Report Type: Spontaneous
  Country: CN (occurrence: CN)
  Receive Date: 20231018
  Receipt Date: 20231018
  Transmission Date: 20240110
  Serious: Yes (Other)
  Sender: FDA-Public Use
  Company Number: CN-PFIZER INC-PV202300169266

PATIENT
  Age: 25 Year
  Sex: Male
  Weight: 63 kg

DRUGS (2)
  1. AZITHROMYCIN [Suspect]
     Active Substance: AZITHROMYCIN
     Indication: Respiratory tract infection
     Dosage: 250 ML, 1X/DAY
     Route: 041
     Dates: start: 20230817, end: 20230817
  2. AMBROXOL HYDROCHLORIDE [Concomitant]
     Active Substance: AMBROXOL HYDROCHLORIDE
     Indication: Respiratory tract infection
     Dosage: 15 MG, 1X/DAY
     Route: 041
     Dates: start: 20230817, end: 20230817

REACTIONS (5)
  - Vision blurred [Recovering/Resolving]
  - Rash [Recovering/Resolving]
  - Erythema of eyelid [Recovering/Resolving]
  - Eyelid rash [Recovering/Resolving]
  - Swelling of eyelid [Recovering/Resolving]

NARRATIVE: CASE EVENT DATE: 20230817
